FAERS Safety Report 15956304 (Version 3)
Quarter: 2019Q2

REPORT INFORMATION
  Report Type: Spontaneous
  Country: US (occurrence: US)
  Receive Date: 20190213
  Receipt Date: 20190506
  Transmission Date: 20190711
  Serious: Yes (Other)
  Sender: FDA-Public Use
  Company Number: US-ASTRAZENECA-2018SF13886

PATIENT
  Age: 28663 Day
  Sex: Male
  Weight: 117.5 kg

DRUGS (36)
  1. PROTONIX [Suspect]
     Active Substance: PANTOPRAZOLE SODIUM
     Route: 065
     Dates: start: 20160812, end: 20160909
  2. NEXIUM [Suspect]
     Active Substance: ESOMEPRAZOLE MAGNESIUM
     Indication: GASTROOESOPHAGEAL REFLUX DISEASE
     Route: 048
     Dates: start: 20040218
  3. PREVACID 24 HR [Suspect]
     Active Substance: LANSOPRAZOLE
     Route: 065
     Dates: start: 20090515, end: 20171231
  4. PREVACID 24 HR [Suspect]
     Active Substance: LANSOPRAZOLE
     Route: 048
  5. PROTONIX [Suspect]
     Active Substance: PANTOPRAZOLE SODIUM
     Route: 065
     Dates: start: 20160811, end: 20160813
  6. ALLEGRA [Concomitant]
     Active Substance: FEXOFENADINE HYDROCHLORIDE
  7. ASPIRIN. [Concomitant]
     Active Substance: ASPIRIN
  8. UNIVASC [Concomitant]
     Active Substance: MOEXIPRIL HYDROCHLORIDE
  9. VIAGRA [Concomitant]
     Active Substance: SILDENAFIL CITRATE
  10. NEXIUM [Suspect]
     Active Substance: ESOMEPRAZOLE MAGNESIUM
     Indication: GASTROOESOPHAGEAL REFLUX DISEASE
     Route: 048
  11. PREVACID 24 HR [Suspect]
     Active Substance: LANSOPRAZOLE
     Dosage: PREVACID OTC
     Route: 065
     Dates: start: 20090515
  12. DOXAZOSIN [Concomitant]
     Active Substance: DOXAZOSIN\DOXAZOSIN MESYLATE
  13. SIMVASTATIN. [Concomitant]
     Active Substance: SIMVASTATIN
  14. AZITHROMYCIN ANHYDROUS. [Concomitant]
     Active Substance: AZITHROMYCIN ANHYDROUS
  15. MEXITIL [Concomitant]
     Active Substance: MEXILETINE HYDROCHLORIDE
  16. AXID [Concomitant]
     Active Substance: NIZATIDINE
  17. BUMETANIDE. [Concomitant]
     Active Substance: BUMETANIDE
  18. CIPROFLOXACIN. [Concomitant]
     Active Substance: CIPROFLOXACIN
  19. FENOFIBRATE. [Concomitant]
     Active Substance: FENOFIBRATE
  20. GABAPENTIN. [Concomitant]
     Active Substance: GABAPENTIN
  21. METOPROLOL TARTRATE. [Concomitant]
     Active Substance: METOPROLOL TARTRATE
  22. TORSEMIDE. [Concomitant]
     Active Substance: TORSEMIDE
  23. PREVACID [Suspect]
     Active Substance: LANSOPRAZOLE
     Route: 065
  24. ATENOLOL. [Concomitant]
     Active Substance: ATENOLOL
  25. JANUVIA [Concomitant]
     Active Substance: SITAGLIPTIN PHOSPHATE
  26. PREVACID [Suspect]
     Active Substance: LANSOPRAZOLE
     Route: 048
  27. POTASSIUM CHLORIDE. [Concomitant]
     Active Substance: POTASSIUM CHLORIDE
  28. SENNOSIDES. [Concomitant]
     Active Substance: SENNOSIDES
  29. LOVASTATIN. [Concomitant]
     Active Substance: LOVASTATIN
  30. NEXIUM [Suspect]
     Active Substance: ESOMEPRAZOLE MAGNESIUM
     Indication: GASTROOESOPHAGEAL REFLUX DISEASE
     Route: 048
     Dates: start: 20020916, end: 20100527
  31. PRILOSEC [Suspect]
     Active Substance: OMEPRAZOLE MAGNESIUM
     Route: 048
     Dates: start: 20020708, end: 20021016
  32. GLIPIZIDE. [Concomitant]
     Active Substance: GLIPIZIDE
  33. PIOGLITAZONE. [Concomitant]
     Active Substance: PIOGLITAZONE
  34. AMBIEN [Concomitant]
     Active Substance: ZOLPIDEM TARTRATE
  35. DOXYCYCLINE. [Concomitant]
     Active Substance: DOXYCYCLINE
  36. METFORMIN [Concomitant]
     Active Substance: METFORMIN HYDROCHLORIDE

REACTIONS (2)
  - Acute kidney injury [Not Recovered/Not Resolved]
  - Chronic kidney disease [Not Recovered/Not Resolved]

NARRATIVE: CASE EVENT DATE: 20170329
